FAERS Safety Report 9283642 (Version 2)
Quarter: 2013Q2

REPORT INFORMATION
  Report Type: Spontaneous
  Country: JP (occurrence: None)
  Receive Date: 20130508
  Receipt Date: 20130521
  Transmission Date: 20140414
  Serious: Yes (Death)
  Sender: FDA-Public Use
  Company Number: TCI2013A02388

PATIENT
  Age: 73 Year
  Sex: Female

DRUGS (1)
  1. NESINA [Suspect]
     Indication: TYPE 2 DIABETES MELLITUS
     Route: 048
     Dates: start: 20120316, end: 20121002

REACTIONS (1)
  - Pneumonia aspiration [None]
